FAERS Safety Report 17203633 (Version 1)
Quarter: 2019Q4

REPORT INFORMATION
  Report Type: Spontaneous
  Country: ES (occurrence: ES)
  Receive Date: 20191226
  Receipt Date: 20191226
  Transmission Date: 20200122
  Serious: Yes (Hospitalization)
  Sender: FDA-Public Use
  Company Number: ES-MYLANLABS-2019M1127983

PATIENT
  Age: 43 Year
  Sex: Female

DRUGS (3)
  1. METAMIZOLE [Concomitant]
     Active Substance: METAMIZOLE
     Indication: MENISCUS INJURY
     Dosage: 1725 MILLIGRAM, QD
     Route: 065
  2. CHONDROITIN SULFATE [Concomitant]
     Active Substance: CHONDROITIN SULFATE (BOVINE)
     Indication: MENISCUS INJURY
     Dosage: 400 MILLIGRAM, QD
     Route: 065
  3. CELECOXIB. [Suspect]
     Active Substance: CELECOXIB
     Indication: MENISCUS INJURY
     Dosage: 200 MILLIGRAM, QD
     Route: 065

REACTIONS (1)
  - Bipolar disorder [Recovered/Resolved]
